FAERS Safety Report 9523479 (Version 3)
Quarter: 2013Q4

REPORT INFORMATION
  Report Type: Report from Study
  Country: US (occurrence: US)
  Receive Date: 20130913
  Receipt Date: 20131004
  Transmission Date: 20140711
  Serious: Yes (Other)
  Sender: FDA-Public Use
  Company Number: US-ROCHE-1238667

PATIENT
  Age: 54 Year
  Sex: Male

DRUGS (7)
  1. LUCENTIS [Suspect]
     Indication: DIABETIC RETINAL OEDEMA
     Route: 050
  2. LUCENTIS [Suspect]
     Indication: DIABETIC RETINOPATHY
  3. AVASTIN [Suspect]
     Indication: PRODUCT USED FOR UNKNOWN INDICATION
     Route: 065
     Dates: start: 20120508
  4. GLIPIZIDE [Concomitant]
  5. VIAGRA [Concomitant]
  6. LISINOPRIL [Concomitant]
  7. LOVASTATIN [Concomitant]

REACTIONS (7)
  - Diabetic retinal oedema [Unknown]
  - Vitreous floaters [Recovered/Resolved]
  - Macular fibrosis [Unknown]
  - Visual acuity reduced [Unknown]
  - Vision blurred [Unknown]
  - Vision blurred [Unknown]
  - Retinal haemorrhage [Unknown]
